FAERS Safety Report 5878712-2 (Version None)
Quarter: 2008Q3

REPORT INFORMATION
  Report Type: 
  Country: None (occurrence: None)
  Receive Date: 20080912
  Receipt Date: 20080903
  Transmission Date: 20090109
  Serious: Yes (Hospitalization, Other)
  Sender: FDA-Public Use
  Company Number: CA-JNJFOC-20080901394

PATIENT
  Age: 19 Year
  Sex: Male

DRUGS (2)
  1. RISPERDAL [Suspect]
     Indication: PARANOIA
     Dosage: MAXIMUM 3-4 MG A DAY
  2. SEROQUEL [Suspect]
     Indication: PARANOIA

REACTIONS (1)
  - PSYCHOTIC DISORDER [None]
